FAERS Safety Report 8570373-7 (Version None)
Quarter: 2012Q3

REPORT INFORMATION
  Report Type: 
  Country: None (occurrence: None)
  Receive Date: 20120803
  Receipt Date: 20120723
  Transmission Date: 20120928
  Serious: Yes (Hospitalization, Other)
  Sender: FDA-Public Use
  Company Number: US-ELI_LILLY_AND_COMPANY-US200911007305

PATIENT
  Sex: Male
  Weight: 117.1 kg

DRUGS (11)
  1. NIACIN [Concomitant]
  2. ANTIHYPERTENSIVES [Concomitant]
     Indication: RENAL DISORDER
  3. GLIPIZIDE [Concomitant]
     Indication: DIABETES MELLITUS
     Dosage: 5 MG, 2/D
     Route: 048
     Dates: start: 19950101, end: 20071201
  4. XANAX [Concomitant]
     Dosage: 0.5 MG, EACH EVENING
     Route: 048
  5. METFORMIN HYDROCHLORIDE [Concomitant]
     Indication: DIABETES MELLITUS
     Dosage: 850 MG, 2/D
     Route: 048
     Dates: start: 19950101, end: 20071201
  6. LIPITOR [Concomitant]
     Indication: BLOOD CHOLESTEROL
     Dosage: UNK, UNK
     Dates: start: 19950101
  7. TYLENOL /SCH/ [Concomitant]
     Indication: INSOMNIA
     Dates: start: 19990101
  8. FISH OIL [Concomitant]
  9. LASIX [Concomitant]
     Dosage: UNK, AS NEEDED
  10. BYETTA [Suspect]
     Dosage: 10 UG, 2/D
     Route: 058
     Dates: start: 20061116, end: 20071228
  11. CARDURA [Concomitant]
     Dosage: 2 MG, DAILY (1/D)
     Route: 048

REACTIONS (6)
  - CHOLELITHIASIS [None]
  - PANCREATITIS [None]
  - RENAL INJURY [None]
  - NEPHROLITHIASIS [None]
  - CONSTIPATION [None]
  - ABDOMINAL PAIN [None]
